FAERS Safety Report 7329504-9 (Version None)
Quarter: 2011Q1

REPORT INFORMATION
  Report Type: 
  Country: None (occurrence: None)
  Receive Date: 20110225
  Receipt Date: 20110225
  Transmission Date: 20110831
  Serious: Yes (Other)
  Sender: FDA-Public Use
  Company Number: None

PATIENT
  Age: 45 Year
  Sex: Male
  Weight: 70.7611 kg

DRUGS (1)
  1. ABELCET [Suspect]
     Indication: MENINGITIS FUNGAL
     Dosage: 400 MG DAILY IV
     Route: 042
     Dates: start: 20110216, end: 20110224

REACTIONS (8)
  - TACHYPNOEA [None]
  - CHILLS [None]
  - TREMOR [None]
  - INFUSION RELATED REACTION [None]
  - BLOOD PRESSURE DIASTOLIC DECREASED [None]
  - HEART RATE INCREASED [None]
  - HEART RATE DECREASED [None]
  - BLOOD PRESSURE SYSTOLIC INCREASED [None]
